FAERS Safety Report 6273381-4 (Version None)
Quarter: 2009Q3

REPORT INFORMATION
  Report Type: 
  Country: None (occurrence: None)
  Receive Date: 20090715
  Receipt Date: 20081112
  Transmission Date: 20100115
  Serious: Yes (Hospitalization)
  Sender: FDA-Public Use
  Company Number: 2008US002940

PATIENT
  Age: 78 Year
  Sex: Female

DRUGS (9)
  1. ADENOSCAN [Suspect]
     Indication: SCAN MYOCARDIAL PERFUSION
     Dates: start: 20081023, end: 20081023
  2. COUMADIN [Concomitant]
  3. LASIX [Concomitant]
  4. ZAROXOLYN [Concomitant]
  5. LIPITOR [Concomitant]
  6. ACIPHEX [Concomitant]
  7. MAGNESIUM (MAGNESIUM) [Concomitant]
  8. VICODIN [Concomitant]
  9. TAPAZOLE [Concomitant]

REACTIONS (3)
  - CHEST PAIN [None]
  - DYSPNOEA [None]
  - PRESYNCOPE [None]
